FAERS Safety Report 6347333-X (Version None)
Quarter: 2009Q3

REPORT INFORMATION
  Report Type: 
  Country: None (occurrence: None)
  Receive Date: 20090910
  Receipt Date: 20090903
  Transmission Date: 20100115
  Serious: Yes (Hospitalization)
  Sender: FDA-Public Use
  Company Number: US-BAYER-200420783BWH

PATIENT
  Age: 77 Year
  Sex: Male
  Weight: 80 kg

DRUGS (7)
  1. SORAFENIB (BAY 43-9006) [Suspect]
     Indication: NON-SMALL CELL LUNG CANCER
     Dosage: TOTAL DAILY DOSE: 800 MG
     Route: 048
     Dates: start: 20040913
  2. SORAFENIB (BAY 43-9006) [Suspect]
     Dosage: TOTAL DAILY DOSE: 800 MG
     Route: 048
     Dates: start: 20041011, end: 20041020
  3. GEMCITABINE [Concomitant]
     Dates: start: 20030401, end: 20030901
  4. ALIMTA [Concomitant]
     Dates: start: 20030401, end: 20030901
  5. CARBOXY-AMINO-IMIDOZOLE (CAI) [Concomitant]
     Dates: start: 20031001, end: 20040201
  6. TAXOTERE [Concomitant]
     Dates: start: 20040301, end: 20040712
  7. CISPLATIN [Concomitant]
     Dates: start: 20040301, end: 20040712

REACTIONS (2)
  - PERIPHERAL SENSORY NEUROPATHY [None]
  - PNEUMONIA [None]
